FAERS Safety Report 20046450 (Version 3)
Quarter: 2022Q1

REPORT INFORMATION
  Report Type: Spontaneous
  Country: CO (occurrence: CO)
  Receive Date: 20211109
  Receipt Date: 20220110
  Transmission Date: 20220423
  Serious: Yes (Other)
  Sender: FDA-Public Use
  Company Number: CO-PFIZER INC-202101458195

PATIENT
  Age: 57 Year
  Sex: Female

DRUGS (2)
  1. ENBREL [Suspect]
     Active Substance: ETANERCEPT
     Indication: Ankylosing spondylitis
     Dosage: 50 MG, WEEKLY
     Route: 058
     Dates: start: 2011, end: 20211007
  2. ENBREL [Suspect]
     Active Substance: ETANERCEPT
     Dosage: 50 MG, EVERY 12,15 OR 25 DAYS
     Route: 058
     Dates: start: 202111

REACTIONS (7)
  - Cardiac disorder [Unknown]
  - General physical health deterioration [Unknown]
  - Joint injury [Unknown]
  - Product dispensing issue [Unknown]
  - Intentional product misuse [Unknown]
  - Prescription drug used without a prescription [Unknown]
  - Hypertension [Not Recovered/Not Resolved]

NARRATIVE: CASE EVENT DATE: 20180101
